FAERS Safety Report 24013654 (Version 1)
Quarter: 2024Q2

REPORT INFORMATION
  Report Type: Report from Study
  Country: US (occurrence: US)
  Receive Date: 20240626
  Receipt Date: 20240626
  Transmission Date: 20240716
  Serious: Yes (Hospitalization)
  Sender: FDA-Public Use
  Company Number: US-GILEAD-2024-0678405

PATIENT
  Age: 54 Year
  Sex: Female

DRUGS (1)
  1. AZTREONAM LYSINE [Suspect]
     Active Substance: AZTREONAM LYSINE
     Indication: Cystic fibrosis lung
     Dosage: INHALE 1 VIAL VIA NEBULIZER THREE TIMES DAILY FOR 28 DAYS ON AND 28 DAYS OFF AND THEN REPEAT CYCLE
     Route: 055
     Dates: start: 20220622

REACTIONS (4)
  - Cystic fibrosis respiratory infection suppression [Unknown]
  - Pulmonary pain [Unknown]
  - Haemoptysis [Unknown]
  - Dyspnoea [Unknown]
